FAERS Safety Report 19982907 (Version 1)
Quarter: 2021Q4

REPORT INFORMATION
  Report Type: Spontaneous
  Country: US (occurrence: US)
  Receive Date: 20211021
  Receipt Date: 20211021
  Transmission Date: 20220304
  Serious: Yes (Other)
  Sender: FDA-Public Use
  Company Number: US-MLMSERVICE-20211005-3146474-1

PATIENT
  Age: 35 Year
  Sex: Male

DRUGS (2)
  1. CARBIDOPA\LEVODOPA [Suspect]
     Active Substance: CARBIDOPA\LEVODOPA
     Indication: Parkinson^s disease
  2. HERBALS [Suspect]
     Active Substance: HERBALS
     Indication: Parkinson^s disease

REACTIONS (6)
  - Anxiety [Unknown]
  - Dyskinesia [Unknown]
  - Self-medication [Unknown]
  - Impulse-control disorder [Unknown]
  - Depression [Unknown]
  - On and off phenomenon [Unknown]
